FAERS Safety Report 4295976-X (Version None)
Quarter: 2004Q1

REPORT INFORMATION
  Report Type: 
  Country: None (occurrence: None)
  Receive Date: 20040212
  Receipt Date: 20040130
  Transmission Date: 20041129
  Serious: Yes (Hospitalization)
  Sender: FDA-Public Use
  Company Number: JP-JNJFOC-20031201329

PATIENT
  Age: 68 Year
  Sex: Female

DRUGS (11)
  1. LEUSTATIN [Suspect]
     Indication: NON-HODGKIN'S LYMPHOMA
     Dosage: 4.1 MG, IN 1 DAY, INTRAVENOUS DRIP
     Route: 041
     Dates: start: 20031025, end: 20031029
  2. LEUSTATIN [Suspect]
     Indication: NON-HODGKIN'S LYMPHOMA
     Dosage: 4.1 MG, IN 1 DAY, INTRAVENOUS DRIP
     Route: 041
     Dates: start: 20031122, end: 20031127
  3. SIMVASTATIN [Concomitant]
  4. ATENOLOL [Concomitant]
  5. BERAPROST SODIUM (BERAPROST SODIUM) [Concomitant]
  6. REBAMIPIDE (REBAMIPIDE) [Concomitant]
  7. MAGNESIUM OXIDE (MAGNESIUM OXIDE) [Concomitant]
  8. FUROSEMIDE [Concomitant]
  9. GRANISETRON HYDROCHLORIDE (GRANISETRON HYDROCHLORIDE) [Concomitant]
  10. POSTERISAN (POSTERISAN) [Concomitant]
  11. FLURBIPROFEN AXETIL (FLURBIPROFEN AXETIL) [Concomitant]

REACTIONS (9)
  - ANAL INFECTION [None]
  - CITROBACTER INFECTION [None]
  - IMPLANT SITE INFECTION [None]
  - LEUKOPENIA [None]
  - POLYURIA [None]
  - PROCTALGIA [None]
  - RECTAL HAEMORRHAGE [None]
  - SEPSIS [None]
  - URINARY RETENTION [None]
